FAERS Safety Report 8508614-4 (Version None)
Quarter: 2012Q3

REPORT INFORMATION
  Report Type: 
  Country: None (occurrence: None)
  Receive Date: 20120703
  Receipt Date: 20120614
  Transmission Date: 20120928
  Serious: Yes (Hospitalization)
  Sender: FDA-Public Use
  Company Number: CIO12011026

PATIENT
  Age: 58 Year
  Sex: Male
  Weight: 76.8 kg

DRUGS (3)
  1. BISMUTH SUBSALICYLATE [Suspect]
     Indication: DIARRHOEA
     Dosage: ORAL
     Route: 048
     Dates: start: 20120518, end: 20120518
  2. RILONACEPT (RILONACEPT) [Suspect]
     Indication: SCLERODERMA
     Dosage: 360 MG, 1 ONLY, SUBCUTANEOUS 160 MG, 1 /WEEK, SUBCUTANEOUS
     Route: 058
     Dates: start: 20120417, end: 20120417
  3. RILONACEPT (RILONACEPT) [Suspect]
     Indication: SCLERODERMA
     Dosage: 360 MG, 1 ONLY, SUBCUTANEOUS 160 MG, 1 /WEEK, SUBCUTANEOUS
     Route: 058
     Dates: start: 20120424, end: 20120522

REACTIONS (2)
  - SMALL INTESTINAL OBSTRUCTION [None]
  - PAIN [None]
